FAERS Safety Report 14628269 (Version 1)
Quarter: 2018Q1

REPORT INFORMATION
  Report Type: Spontaneous
  Country: US (occurrence: US)
  Receive Date: 20180312
  Receipt Date: 20180312
  Transmission Date: 20180509
  Serious: No
  Sender: FDA-Public Use
  Company Number: US-ALLERGAN-1764171US

PATIENT
  Age: 85 Year
  Sex: Female

DRUGS (4)
  1. ESTRACE [Suspect]
     Active Substance: ESTRADIOL
     Indication: MENOPAUSE
     Dosage: 1 G, BID
     Route: 067
     Dates: start: 2017, end: 20171103
  2. ESTRACE [Suspect]
     Active Substance: ESTRADIOL
     Indication: URINE ODOUR ABNORMAL
  3. COUMADIN [Concomitant]
     Active Substance: WARFARIN SODIUM
     Indication: CARDIAC DISORDER
     Route: 065
  4. METOPROLOL. [Concomitant]
     Active Substance: METOPROLOL
     Indication: HYPERTENSION
     Route: 065

REACTIONS (7)
  - Pruritus [Recovered/Resolved]
  - Urticaria [Recovered/Resolved]
  - Off label use [Unknown]
  - Skin haemorrhage [Recovered/Resolved]
  - Vision blurred [Recovered/Resolved]
  - Hypersensitivity [Recovered/Resolved]
  - Visual impairment [Recovered/Resolved]

NARRATIVE: CASE EVENT DATE: 2017
